FAERS Safety Report 20656101 (Version 3)
Quarter: 2022Q2

REPORT INFORMATION
  Report Type: Spontaneous
  Country: JP (occurrence: JP)
  Receive Date: 20220330
  Receipt Date: 20220502
  Transmission Date: 20220721
  Serious: Yes (Hospitalization, Other)
  Sender: FDA-Public Use
  Company Number: JP-NOVARTISPH-NVSJ2022JP005184

PATIENT
  Sex: Female

DRUGS (12)
  1. ENTRESTO [Suspect]
     Active Substance: SACUBITRIL\VALSARTAN
     Indication: Cardiac failure chronic
     Dosage: 50 MG, QD
     Route: 048
     Dates: start: 20220314, end: 20220324
  2. SAMSCA [Suspect]
     Active Substance: TOLVAPTAN
     Indication: Product used for unknown indication
     Dosage: UNK
     Route: 048
  3. AZOSEMIDE [Suspect]
     Active Substance: AZOSEMIDE
     Indication: Product used for unknown indication
     Dosage: UNK
     Route: 048
  4. FEBUXOSTAT [Suspect]
     Active Substance: FEBUXOSTAT
     Indication: Product used for unknown indication
     Dosage: UNK
     Route: 048
  5. DAPRODUSTAT [Suspect]
     Active Substance: DAPRODUSTAT
     Indication: Product used for unknown indication
     Dosage: UNK
     Route: 048
  6. SODIUM FERROUS CITRATE [Suspect]
     Active Substance: SODIUM FERROUS CITRATE
     Indication: Product used for unknown indication
     Dosage: UNK
     Route: 048
  7. BROTIZOLAM [Suspect]
     Active Substance: BROTIZOLAM
     Indication: Product used for unknown indication
     Dosage: UNK
     Route: 048
  8. LANSOPRAZOLE [Suspect]
     Active Substance: LANSOPRAZOLE
     Indication: Product used for unknown indication
     Dosage: UNK
     Route: 048
  9. ETIZOLAM [Suspect]
     Active Substance: ETIZOLAM
     Indication: Product used for unknown indication
     Dosage: UNK
     Route: 048
  10. WARFARIN [Suspect]
     Active Substance: WARFARIN
     Indication: Product used for unknown indication
     Dosage: UNK
     Route: 048
  11. CALCIUM POLYSTYRENE SULFONATE [Suspect]
     Active Substance: CALCIUM POLYSTYRENE SULFONATE
     Indication: Product used for unknown indication
     Dosage: UNK
     Route: 065
  12. PIMOBENDAN [Suspect]
     Active Substance: PIMOBENDAN
     Indication: Product used for unknown indication
     Dosage: UNK
     Route: 065

REACTIONS (2)
  - Face oedema [Recovered/Resolved]
  - Angioedema [Unknown]

NARRATIVE: CASE EVENT DATE: 20220324
